FAERS Safety Report 15566063 (Version 1)
Quarter: 2018Q4

REPORT INFORMATION
  Report Type: Spontaneous
  Country: US (occurrence: US)
  Receive Date: 20181030
  Receipt Date: 20181030
  Transmission Date: 20190205
  Serious: No
  Sender: FDA-Public Use
  Company Number: US-NOVOPROD-572165

PATIENT
  Sex: Female

DRUGS (2)
  1. VAGIFEM LD [Suspect]
     Active Substance: ESTRADIOL
     Indication: PRODUCT USED FOR UNKNOWN INDICATION
     Dosage: UNK
     Route: 067
  2. VAGIFEM LD [Suspect]
     Active Substance: ESTRADIOL
     Dosage: ONCE WEEKLY
     Route: 067

REACTIONS (2)
  - Intentional product misuse [Unknown]
  - Vision blurred [Unknown]
